FAERS Safety Report 9427046 (Version 1)
Quarter: 2013Q3

REPORT INFORMATION
  Report Type: Spontaneous
  Country: US (occurrence: US)
  Receive Date: 20130730
  Receipt Date: 20130730
  Transmission Date: 20140515
  Serious: No
  Sender: FDA-Public Use
  Company Number: US-ABBOTT-12P-163-0995501-00

PATIENT
  Age: 67 Year
  Sex: Male
  Weight: 95.34 kg

DRUGS (4)
  1. NIASPAN (COATED) [Suspect]
     Indication: BLOOD CHOLESTEROL
     Dates: start: 20120919, end: 20121010
  2. NIASPAN (COATED) [Suspect]
     Dates: start: 20121011
  3. NORVASC [Concomitant]
     Indication: HYPERTENSION
  4. AVODART [Concomitant]
     Indication: PROSTATOMEGALY

REACTIONS (3)
  - Pollakiuria [Recovered/Resolved]
  - Flushing [Not Recovered/Not Resolved]
  - Pollakiuria [Recovered/Resolved]
